FAERS Safety Report 23092660 (Version 1)
Quarter: 2023Q4

REPORT INFORMATION
  Report Type: Spontaneous
  Country: NO (occurrence: NO)
  Receive Date: 20231021
  Receipt Date: 20231021
  Transmission Date: 20240110
  Serious: Yes (Hospitalization, Other)
  Sender: FDA-Public Use
  Company Number: None

PATIENT
  Age: 34 Year
  Sex: Female
  Weight: 62 kg

DRUGS (12)
  1. TRAMADOL [Suspect]
     Active Substance: TRAMADOL\TRAMADOL HYDROCHLORIDE
     Indication: Headache
     Dosage: 1-2 CAPSULES UP TO THREE TIMES DAILY
     Dates: start: 20230309, end: 20230611
  2. TRAMADOL [Suspect]
     Active Substance: TRAMADOL\TRAMADOL HYDROCHLORIDE
     Indication: Cervicogenic headache
  3. TRAMADOL [Suspect]
     Active Substance: TRAMADOL\TRAMADOL HYDROCHLORIDE
     Indication: Pain
  4. LISDEXAMFETAMINE DIMESYLATE [Concomitant]
     Active Substance: LISDEXAMFETAMINE DIMESYLATE
     Indication: Attention deficit hyperactivity disorder
     Dosage: 1 DOSAGE FORMS DAILY; 1 TABLET MORNING, ADUVANZ CAP 70 MG
     Dates: start: 20210924
  5. LISDEXAMFETAMINE DIMESYLATE [Concomitant]
     Active Substance: LISDEXAMFETAMINE DIMESYLATE
     Indication: Attention deficit hyperactivity disorder
  6. VENLAFAXINE HYDROCHLORIDE [Concomitant]
     Active Substance: VENLAFAXINE HYDROCHLORIDE
     Indication: Panic attack
     Dosage: 1 DOSAGE FORMS DAILY; ONE CAPSULE IN THE EVENING
     Dates: start: 20210428, end: 20230611
  7. ZOLOFT [Concomitant]
     Active Substance: SERTRALINE HYDROCHLORIDE
     Indication: Depression
     Dosage: 2 DOSAGE FORMS DAILY; 2 TABLETS IN THE EVENING, ZOLOFT TAB 100 MG
     Dates: start: 20201026
  8. ZOLOFT [Concomitant]
     Active Substance: SERTRALINE HYDROCHLORIDE
     Indication: Anxiety
  9. VALIUM [Concomitant]
     Active Substance: DIAZEPAM
     Indication: Restlessness
     Dosage: 1 DOSAGE FORMS DAILY; ONE TABLET IN THE EVENING, VALIUM TAB 5 MG
     Dates: start: 20201005, end: 20230611
  10. VALIUM [Concomitant]
     Active Substance: DIAZEPAM
     Indication: Anxiety
  11. VOLTAREN [Concomitant]
     Active Substance: DICLOFENAC SODIUM
     Indication: Sciatica
     Dosage: 1 TABLET UP TO 3 TIMES DAILY, VOLTAREN ENTEROTAB 50 MG
     Dates: start: 20210424, end: 20230611
  12. VOLTAREN [Concomitant]
     Active Substance: DICLOFENAC SODIUM
     Indication: Pain

REACTIONS (4)
  - Panic attack [Unknown]
  - Hallucination [Recovered/Resolved]
  - Dyspnoea [Unknown]
  - Vomiting [Unknown]

NARRATIVE: CASE EVENT DATE: 20230318
